FAERS Safety Report 10811860 (Version 2)
Quarter: 2015Q2

REPORT INFORMATION
  Report Type: Spontaneous
  Country: CH (occurrence: CH)
  Receive Date: 20150217
  Receipt Date: 20150423
  Transmission Date: 20150821
  Serious: Yes (Other)
  Sender: FDA-Public Use
  Company Number: CH-ABBVIE-15P-151-1347747-00

PATIENT
  Sex: Female

DRUGS (1)
  1. DUODOPA [Suspect]
     Active Substance: CARBIDOPA\LEVODOPA
     Indication: PRODUCT USED FOR UNKNOWN INDICATION
     Dosage: CONTINUOUS DOSE DAY. 4ML/H?CONTINUOUS DOSE NIGHT: 2.9ML/H
     Route: 050
     Dates: start: 20140501

REACTIONS (2)
  - Cataract [Unknown]
  - Device issue [Unknown]
